FAERS Safety Report 18500395 (Version 2)
Quarter: 2020Q4

REPORT INFORMATION
  Report Type: Spontaneous
  Country: JP (occurrence: JP)
  Receive Date: 20201113
  Receipt Date: 20201121
  Transmission Date: 20210114
  Serious: Yes (Other)
  Sender: FDA-Public Use
  Company Number: JP-AUROBINDO-AUR-APL-2020-056877

PATIENT
  Age: 66 Year
  Sex: Male

DRUGS (7)
  1. FOLOTYN [Suspect]
     Active Substance: PRALATREXATE
     Indication: CUTANEOUS T-CELL LYMPHOMA
     Dosage: CYCLE 3 DAY 1
     Route: 042
  2. FOLOTYN [Suspect]
     Active Substance: PRALATREXATE
     Dosage: CYCLE 3 DAY 8
     Route: 042
  3. FOLOTYN [Suspect]
     Active Substance: PRALATREXATE
     Dosage: CYCLE 3 DAY 22
     Route: 042
  4. MUNDESINE [Suspect]
     Active Substance: FORODESINE HYDROCHLORIDE
     Indication: CUTANEOUS T-CELL LYMPHOMA
     Dosage: UNK
     Route: 048
  5. FOLOTYN [Suspect]
     Active Substance: PRALATREXATE
     Dosage: CYCLE 2
     Route: 042
  6. FOLOTYN [Suspect]
     Active Substance: PRALATREXATE
     Dosage: CYCLE 3 DAY 15
     Route: 042
  7. FOLOTYN [Suspect]
     Active Substance: PRALATREXATE
     Dosage: CYCLE 1
     Route: 042

REACTIONS (2)
  - Blood lactate dehydrogenase increased [Unknown]
  - Malignant neoplasm progression [Unknown]
